FAERS Safety Report 8229290-4 (Version None)
Quarter: 2012Q1

REPORT INFORMATION
  Report Type: 
  Country: None (occurrence: None)
  Receive Date: 20120322
  Receipt Date: 20120312
  Transmission Date: 20120608
  Serious: Yes (Other)
  Sender: FDA-Public Use
  Company Number: US-PURDUE-USA-2012-0083656

PATIENT
  Age: 61 Year
  Sex: Female
  Weight: 90.703 kg

DRUGS (9)
  1. METHADONE HCL [Suspect]
     Indication: FIBROMYALGIA
     Dosage: 20 MG, DAILY
     Route: 048
  2. LISINOPRIL AND HYDROCHLOROTHIAZIDE [Concomitant]
     Indication: BLOOD PRESSURE ABNORMAL
     Dosage: 20/12.5 MG DAILY
     Route: 048
  3. NEURONTIN [Suspect]
     Indication: FIBROMYALGIA
  4. UNSPECIFIED MEDICATIONS [Suspect]
     Indication: FIBROMYALGIA
  5. PROZAC [Suspect]
     Indication: DEPRESSION
     Dosage: 20 MG, UNK
  6. OXYCODONE HCL [Suspect]
     Indication: FIBROMYALGIA
  7. METHADONE HCL [Suspect]
     Dosage: 40 MG, DAILY
     Route: 048
  8. PROZAC [Suspect]
     Indication: BIPOLAR DISORDER
  9. NAPROXEN (ALEVE) [Suspect]
     Indication: PRODUCT USED FOR UNKNOWN INDICATION
     Route: 048

REACTIONS (8)
  - DRUG INEFFECTIVE [None]
  - WRONG TECHNIQUE IN DRUG USAGE PROCESS [None]
  - PRECANCEROUS CELLS PRESENT [None]
  - BIPOLAR DISORDER [None]
  - ARTHRALGIA [None]
  - INAPPROPRIATE SCHEDULE OF DRUG ADMINISTRATION [None]
  - ABDOMINAL DISCOMFORT [None]
  - MALAISE [None]
